FAERS Safety Report 17197405 (Version 23)
Quarter: 2021Q1

REPORT INFORMATION
  Report Type: Report from Study
  Country: US (occurrence: US)
  Receive Date: 20191224
  Receipt Date: 20210120
  Transmission Date: 20210419
  Serious: Yes (Hospitalization, Other)
  Sender: FDA-Public Use
  Company Number: NVSC2019US044647

PATIENT
  Age: 91 Year
  Sex: Female

DRUGS (6)
  1. BEOVU [Suspect]
     Active Substance: BROLUCIZUMAB-DBLL
     Dosage: 6 MG, QMO (BOTH EYES)
     Route: 047
     Dates: start: 20200319
  2. BEOVU [Suspect]
     Active Substance: BROLUCIZUMAB-DBLL
     Indication: NEOVASCULAR AGE-RELATED MACULAR DEGENERATION
     Dosage: UNK (RIGHT EYE)
     Route: 047
     Dates: start: 20191114
  3. BEOVU [Suspect]
     Active Substance: BROLUCIZUMAB-DBLL
     Dosage: UNK UNK, QMO (RESTARTED, BOTH EYES)
     Route: 047
  4. AVASTIN [Suspect]
     Active Substance: BEVACIZUMAB
     Indication: NEOVASCULAR AGE-RELATED MACULAR DEGENERATION
     Dosage: UNK (LEFT EYE)
     Route: 065
  5. BEOVU [Suspect]
     Active Substance: BROLUCIZUMAB-DBLL
     Dosage: UNK (RIGHT EYE)
     Route: 047
     Dates: start: 20191212
  6. BEOVU [Suspect]
     Active Substance: BROLUCIZUMAB-DBLL
     Dosage: UNK (BOTH EYES)
     Route: 047

REACTIONS (24)
  - Product dose omission issue [Unknown]
  - Dyschromatopsia [Not Recovered/Not Resolved]
  - Arthralgia [Unknown]
  - Bronchitis [Unknown]
  - Ocular hyperaemia [Recovering/Resolving]
  - Ocular discomfort [Not Recovered/Not Resolved]
  - Blindness unilateral [Unknown]
  - Photophobia [Not Recovered/Not Resolved]
  - Middle insomnia [Not Recovered/Not Resolved]
  - Visual field defect [Recovering/Resolving]
  - Eye complication associated with device [Unknown]
  - Feeling abnormal [Unknown]
  - Circulatory collapse [Unknown]
  - Weight decreased [Unknown]
  - Vision blurred [Not Recovered/Not Resolved]
  - Colitis microscopic [Unknown]
  - Astigmatism [Unknown]
  - Depression [Unknown]
  - Colitis [Recovering/Resolving]
  - Diarrhoea [Recovering/Resolving]
  - Ulcerative keratitis [Unknown]
  - Dehydration [Unknown]
  - Visual impairment [Not Recovered/Not Resolved]
  - Drug ineffective [Not Recovered/Not Resolved]

NARRATIVE: CASE EVENT DATE: 20191114
